FAERS Safety Report 5755797-5 (Version None)
Quarter: 2008Q2

REPORT INFORMATION
  Report Type: 
  Country: None (occurrence: None)
  Receive Date: 20080602
  Receipt Date: 20070502
  Transmission Date: 20081010
  Serious: Yes (Hospitalization)
  Sender: FDA-Public Use
  Company Number: GR-WYE-H01067007

PATIENT
  Age: 62 Year
  Sex: Male

DRUGS (1)
  1. TIGECYCLINE [Suspect]
     Indication: ABDOMINAL INFECTION
     Dosage: UNKNOWN
     Route: 042
     Dates: start: 20061111

REACTIONS (1)
  - ABDOMINAL INFECTION [None]
